FAERS Safety Report 9471209 (Version 1)
Quarter: 2013Q3

REPORT INFORMATION
  Report Type: Not Available
  Country: US (occurrence: US)
  Receive Date: 20130822
  Receipt Date: 20130822
  Transmission Date: 20140515
  Serious: No
  Sender: FDA-Public Use
  Company Number: US-TARO-2012P1055510

PATIENT
  Age: 55 Year
  Sex: Male
  Weight: 72.58 kg

DRUGS (2)
  1. TERBINAFINE HCL CREAM 1% (ATHLETES FOOT) [Suspect]
     Indication: TINEA PEDIS
     Route: 061
     Dates: start: 201207, end: 20120824
  2. MULTIVITAMIN [Concomitant]

REACTIONS (2)
  - Drug ineffective [Unknown]
  - Incorrect product storage [Unknown]
